FAERS Safety Report 9732595 (Version 3)
Quarter: 2014Q1

REPORT INFORMATION
  Report Type: Report from Study
  Country: US (occurrence: US)
  Receive Date: 20131205
  Receipt Date: 20140115
  Transmission Date: 20141002
  Serious: Yes (Other)
  Sender: FDA-Public Use
  Company Number: US-ROCHE-1313883

PATIENT
  Age: 0 Day
  Sex: Male
  Weight: 3.18 kg

DRUGS (13)
  1. OMALIZUMAB [Suspect]
     Indication: PRODUCT USED FOR UNKNOWN INDICATION
     Route: 064
     Dates: start: 20130314
  2. OMALIZUMAB [Suspect]
     Dosage: 2ND TRIMESTER
     Route: 064
     Dates: start: 20130530
  3. OMALIZUMAB [Suspect]
     Dosage: 2ND TRIMESTER
     Route: 064
     Dates: start: 20130613
  4. OMALIZUMAB [Suspect]
     Dosage: 2ND TRIMESTER
     Route: 064
     Dates: start: 20130627
  5. OMALIZUMAB [Suspect]
     Dosage: 2ND TRIMESTER
     Route: 064
     Dates: start: 20130711
  6. OMALIZUMAB [Suspect]
     Dosage: 2ND TRIMESTER
     Route: 064
     Dates: start: 20130729
  7. OMALIZUMAB [Suspect]
     Dosage: 2ND TRIMESTER
     Route: 064
     Dates: start: 20130812
  8. OMALIZUMAB [Suspect]
     Dosage: 3RD TRIMESTER
     Route: 064
     Dates: start: 20130826
  9. OMALIZUMAB [Suspect]
     Dosage: 1ST TRIMESTER
     Route: 064
     Dates: start: 20130502
  10. OMALIZUMAB [Suspect]
     Dosage: 2ND TRIMESTER
     Route: 064
     Dates: start: 20130516
  11. OMALIZUMAB [Suspect]
     Dosage: 1ST TRIMESTER
     Route: 064
     Dates: start: 20130328
  12. OMALIZUMAB [Suspect]
     Dosage: 1ST TRIMESTER
     Route: 064
     Dates: start: 20130418
  13. OMALIZUMAB [Suspect]
     Route: 064
     Dates: start: 201309

REACTIONS (2)
  - Transient tachypnoea of the newborn [Recovered/Resolved]
  - Foetal exposure during pregnancy [Unknown]
